FAERS Safety Report 9238867 (Version 1)
Quarter: 2013Q2

REPORT INFORMATION
  Report Type: Spontaneous
  Country: FR (occurrence: FR)
  Receive Date: 20130418
  Receipt Date: 20130418
  Transmission Date: 20140414
  Serious: Yes (Other)
  Sender: FDA-Public Use
  Company Number: FR-ROCHE-1215558

PATIENT
  Age: 59 Year
  Sex: Female

DRUGS (5)
  1. HERCEPTIN [Suspect]
     Indication: PRODUCT USED FOR UNKNOWN INDICATION
     Route: 042
     Dates: start: 20110621, end: 20120619
  2. FLUOROURACIL [Suspect]
     Indication: PRODUCT USED FOR UNKNOWN INDICATION
     Dosage: FLUOROURACILE WINTHROP
     Route: 042
     Dates: start: 20110329, end: 20110510
  3. ENDOXAN [Suspect]
     Indication: PRODUCT USED FOR UNKNOWN INDICATION
     Route: 042
     Dates: start: 20110329, end: 20110510
  4. EPIRUBICIN [Suspect]
     Indication: PRODUCT USED FOR UNKNOWN INDICATION
     Dosage: EPIRUBICINE EBEWE
     Route: 042
     Dates: start: 20110329, end: 20110510
  5. DOCETAXEL [Suspect]
     Indication: PRODUCT USED FOR UNKNOWN INDICATION
     Dosage: DOCETAXEL HOSPIRA
     Route: 042
     Dates: start: 20110531, end: 20110712

REACTIONS (1)
  - Alopecia [Recovered/Resolved with Sequelae]
